FAERS Safety Report 12173415 (Version 1)
Quarter: 2016Q1

REPORT INFORMATION
  Report Type: Report from Study
  Country: CA (occurrence: CA)
  Receive Date: 20160311
  Receipt Date: 20160311
  Transmission Date: 20160526
  Serious: Yes (Death, Hospitalization, Other)
  Sender: FDA-Public Use
  Company Number: CA-ASTRAZENECA-2014SE45031

PATIENT
  Age: 24155 Day
  Sex: Male

DRUGS (8)
  1. ZOLADEX LA [Suspect]
     Active Substance: GOSERELIN ACETATE
     Indication: PROSTATE CANCER
     Route: 058
     Dates: start: 20140617
  2. PREDNISONE. [Concomitant]
     Active Substance: PREDNISONE
  3. ZOLADEX LA [Suspect]
     Active Substance: GOSERELIN ACETATE
     Indication: PROSTATE CANCER
     Route: 058
     Dates: start: 20130628
  4. ZOLADEX LA [Suspect]
     Active Substance: GOSERELIN ACETATE
     Indication: PROSTATE CANCER
     Route: 058
     Dates: start: 20151216
  5. ZOLADEX LA [Suspect]
     Active Substance: GOSERELIN ACETATE
     Indication: PROSTATE CANCER
     Route: 058
     Dates: start: 20140317
  6. CELECOXIB. [Concomitant]
     Active Substance: CELECOXIB
  7. PREGABALIN. [Concomitant]
     Active Substance: PREGABALIN
  8. XYTIGA [Concomitant]

REACTIONS (12)
  - Alopecia [Not Recovered/Not Resolved]
  - Hypoaesthesia [Not Recovered/Not Resolved]
  - Asthenia [Not Recovered/Not Resolved]
  - Metastases to bone [Not Recovered/Not Resolved]
  - Metastases to lung [Not Recovered/Not Resolved]
  - General physical health deterioration [Not Recovered/Not Resolved]
  - Dizziness [Not Recovered/Not Resolved]
  - Fall [Not Recovered/Not Resolved]
  - Pulmonary oedema [Not Recovered/Not Resolved]
  - Pain [Not Recovered/Not Resolved]
  - Death [Fatal]
  - Dyspnoea [Not Recovered/Not Resolved]

NARRATIVE: CASE EVENT DATE: 20151014
